FAERS Safety Report 7903718-9 (Version None)
Quarter: 2011Q4

REPORT INFORMATION
  Report Type: 
  Country: None (occurrence: None)
  Receive Date: 20111109
  Receipt Date: 20111107
  Transmission Date: 20120403
  Serious: Yes (Other)
  Sender: FDA-Public Use
  Company Number: FR-ROCHE-649863

PATIENT
  Sex: Male
  Weight: 80 kg

DRUGS (3)
  1. CAMPTOSAR [Interacting]
     Indication: GLIOBLASTOMA
     Route: 042
     Dates: start: 20090528, end: 20090716
  2. CORTICOSTEROID NOS [Concomitant]
     Indication: GLIOBLASTOMA
  3. AVASTIN [Suspect]
     Indication: GLIOBLASTOMA
     Dosage: FORM: DRIP SOLUTION, STRENGTH: 25 MG/ML
     Route: 042
     Dates: start: 20090528, end: 20090716

REACTIONS (1)
  - SKIN NECROSIS [None]
